FAERS Safety Report 4276831-8 (Version None)
Quarter: 2004Q1

REPORT INFORMATION
  Report Type: 
  Country: None (occurrence: None)
  Receive Date: 20040120
  Receipt Date: 20040106
  Transmission Date: 20041129
  Serious: Yes (Hospitalization)
  Sender: FDA-Public Use
  Company Number: 03P-013-0243386-00

PATIENT
  Age: 39 Year
  Sex: Female
  Weight: 112.4 kg

DRUGS (2)
  1. MERIDIA [Suspect]
     Indication: OBESITY
     Dosage: PER ORAL
     Route: 048
     Dates: start: 20030417, end: 20031117
  2. PROGESTOGENS AND ESTROGENS IN COMBINATION [Suspect]
     Indication: CONTRACEPTION
     Dosage: PER ORAL
     Route: 048

REACTIONS (2)
  - COLITIS ISCHAEMIC [None]
  - HAEMORRHAGE [None]
